FAERS Safety Report 18584328 (Version 1)
Quarter: 2020Q4

REPORT INFORMATION
  Report Type: Spontaneous
  Country: DK (occurrence: DK)
  Receive Date: 20201207
  Receipt Date: 20201207
  Transmission Date: 20210114
  Serious: Yes (Hospitalization)
  Sender: FDA-Public Use
  Company Number: DK-TEVA-2020-DK-1854492

PATIENT
  Age: 85 Year
  Sex: Male

DRUGS (2)
  1. VENLAFAXINE [Suspect]
     Active Substance: VENLAFAXINE HYDROCHLORIDE
     Indication: DEPRESSION
     Dosage: 75 MG:STARTDATE UNKNOWN, BUT PATIENT HAS TAKEN VENLAFAXIN FOR 25 YEARS
     Route: 048
  2. MIRTAZAPIN ^ACTAVIS^ [Concomitant]
     Active Substance: MIRTAZAPINE
     Indication: DEPRESSION
     Dosage: 15MG
     Route: 048
     Dates: start: 20180504

REACTIONS (2)
  - Orthostatic hypotension [Recovering/Resolving]
  - Dizziness postural [Recovering/Resolving]
